FAERS Safety Report 10176530 (Version 1)
Quarter: 2014Q2

REPORT INFORMATION
  Report Type: Spontaneous
  Country: US (occurrence: None)
  Receive Date: 20140515
  Receipt Date: 20140515
  Transmission Date: 20141212
  Serious: Yes (Other)
  Sender: FDA-Public Use
  Company Number: None

PATIENT
  Age: 50 Year
  Sex: Female
  Weight: 72.58 kg

DRUGS (1)
  1. FINGOLIMOD [Suspect]
     Indication: MULTIPLE SCLEROSIS

REACTIONS (5)
  - Opportunistic infection [None]
  - Gastroenteritis [None]
  - Amoebiasis [None]
  - Papilloma viral infection [None]
  - Cervical dysplasia [None]
